FAERS Safety Report 19933798 (Version 1)
Quarter: 2021Q4

REPORT INFORMATION
  Report Type: Spontaneous
  Country: SG (occurrence: SG)
  Receive Date: 20211008
  Receipt Date: 20211008
  Transmission Date: 20220303
  Serious: Yes (Other)
  Sender: FDA-Public Use
  Company Number: SG-JUBILANT CADISTA PHARMACEUTICALS-2021JUB00307

PATIENT
  Age: 64 Year
  Sex: Female

DRUGS (8)
  1. ALENDRONATE [Suspect]
     Active Substance: ALENDRONATE SODIUM
     Indication: Bone density decreased
     Dosage: 70 MG, 1X/WEEK
     Route: 048
  2. ALENDRONATE [Suspect]
     Active Substance: ALENDRONATE SODIUM
     Indication: Osteoporosis
  3. PREDNISOLONE [Concomitant]
     Active Substance: PREDNISOLONE
     Route: 065
  4. WARFARIN [Concomitant]
     Active Substance: WARFARIN
     Route: 065
  5. NIFEDIPINE [Concomitant]
     Active Substance: NIFEDIPINE
     Route: 065
  6. ATORVASTATIN [Concomitant]
     Active Substance: ATORVASTATIN
     Route: 065
  7. SILDENAFIL [Concomitant]
     Active Substance: SILDENAFIL
     Route: 065
  8. OMEPRAZOLE [Concomitant]
     Active Substance: OMEPRAZOLE
     Route: 065

REACTIONS (4)
  - Choroidal effusion [Recovered/Resolved]
  - Eye inflammation [Recovered/Resolved]
  - Angle closure glaucoma [Recovered/Resolved]
  - Iridocyclitis [Recovered/Resolved]
